FAERS Safety Report 11661911 (Version 1)
Quarter: 2015Q4

REPORT INFORMATION
  Report Type: Spontaneous
  Country: US (occurrence: US)
  Receive Date: 20151026
  Receipt Date: 20151026
  Transmission Date: 20160304
  Serious: No
  Sender: FDA-Public Use
  Company Number: US-INVAGEN PHARMACEUTICALS, INC.-1043414

PATIENT
  Age: 54 Year
  Sex: Male

DRUGS (2)
  1. AMLODIPINE BESYLATE. [Suspect]
     Active Substance: AMLODIPINE BESYLATE
     Indication: HYPERTENSION
     Route: 048
  2. ENZYME SUPPLEMENT [Concomitant]

REACTIONS (4)
  - Hypoaesthesia oral [Unknown]
  - Dry mouth [Unknown]
  - Dizziness [Unknown]
  - Fatigue [Unknown]
